FAERS Safety Report 5674699-6 (Version None)
Quarter: 2008Q1

REPORT INFORMATION
  Report Type: 
  Country: None (occurrence: None)
  Receive Date: 20080320
  Receipt Date: 20080317
  Transmission Date: 20080703
  Serious: Yes (Hospitalization)
  Sender: FDA-Public Use
  Company Number: B0512449A

PATIENT
  Age: 33 Year

DRUGS (1)
  1. IMIGRAN [Suspect]
     Indication: DRUG USE FOR UNKNOWN INDICATION
     Dosage: 50MG FOUR TIMES PER DAY

REACTIONS (2)
  - INTENTIONAL DRUG MISUSE [None]
  - MUSCULOSKELETAL DISORDER [None]
